FAERS Safety Report 5738868-9 (Version None)
Quarter: 2008Q2

REPORT INFORMATION
  Report Type: 
  Country: None (occurrence: None)
  Receive Date: 20080515
  Receipt Date: 20080425
  Transmission Date: 20081010
  Serious: No
  Sender: FDA-Public Use
  Company Number: A0724858A

PATIENT
  Age: 65 Year
  Sex: Male

DRUGS (3)
  1. VERAMYST [Suspect]
     Dosage: 1SPR PER DAY
     Route: 045
     Dates: start: 20080410, end: 20080421
  2. PAXIL [Concomitant]
  3. OMEPRAZOLE [Concomitant]

REACTIONS (1)
  - HEADACHE [None]
